FAERS Safety Report 24578150 (Version 6)
Quarter: 2025Q2

REPORT INFORMATION
  Report Type: Report from Study
  Country: GB (occurrence: GB)
  Receive Date: 20241104
  Receipt Date: 20250529
  Transmission Date: 20250716
  Serious: Yes (Other)
  Sender: AMGEN
  Company Number: GB-Vifor (International) Inc.-VIT-2024-09832

PATIENT
  Age: 75 Year
  Sex: Female

DRUGS (12)
  1. AVACOPAN [Suspect]
     Active Substance: AVACOPAN
     Indication: Anti-neutrophil cytoplasmic antibody positive vasculitis
     Dosage: 30,MG,BID
     Route: 048
     Dates: start: 20240724, end: 20241013
  2. AVACOPAN [Suspect]
     Active Substance: AVACOPAN
     Dosage: 10 MG, BID
     Route: 048
     Dates: start: 20241013, end: 20241102
  3. CYCLOPHOSPHAMIDE [Concomitant]
     Active Substance: CYCLOPHOSPHAMIDE
     Indication: Anti-neutrophil cytoplasmic antibody positive vasculitis
     Route: 042
     Dates: start: 20240725, end: 20240823
  4. RITUXIMAB [Concomitant]
     Active Substance: RITUXIMAB
     Indication: Anti-neutrophil cytoplasmic antibody positive vasculitis
     Route: 040
     Dates: start: 20240804, end: 20240804
  5. RITUXIMAB [Concomitant]
     Active Substance: RITUXIMAB
     Route: 040
     Dates: start: 20240804, end: 20240804
  6. METHYLPREDNISOLONE [Concomitant]
     Active Substance: METHYLPREDNISOLONE
     Indication: Anti-neutrophil cytoplasmic antibody positive vasculitis
     Dosage: 500 MG, OD
     Route: 042
     Dates: start: 20240919, end: 20241021
  7. HYDROCORTISONE [Concomitant]
     Active Substance: HYDROCORTISONE
     Indication: Anti-neutrophil cytoplasmic antibody positive vasculitis
     Route: 042
     Dates: start: 20240720, end: 20240727
  8. PREDNISOLONE [Concomitant]
     Active Substance: PREDNISOLONE
     Indication: Anti-neutrophil cytoplasmic antibody positive vasculitis
     Dosage: 60 MG, QD
     Route: 048
     Dates: start: 20240722, end: 20240728
  9. PREDNISOLONE [Concomitant]
     Active Substance: PREDNISOLONE
     Dosage: 40 MG, QD
     Route: 048
     Dates: start: 20240729, end: 20240802
  10. PREDNISOLONE [Concomitant]
     Active Substance: PREDNISOLONE
     Dosage: 20 MG, QD
     Route: 048
     Dates: start: 20240803, end: 20240805
  11. PREDNISOLONE [Concomitant]
     Active Substance: PREDNISOLONE
     Dosage: 10 MG, QD
     Route: 048
     Dates: start: 20240806, end: 20240811
  12. PREDNISOLONE [Concomitant]
     Active Substance: PREDNISOLONE
     Dosage: 5 MG, QD
     Route: 048
     Dates: start: 20240812, end: 20240818

REACTIONS (4)
  - Neutropenia [Recovered/Resolved]
  - Neutropenia [Recovered/Resolved]
  - Neutropenia [Recovering/Resolving]
  - Influenza [Recovered/Resolved]

NARRATIVE: CASE EVENT DATE: 20240930
